FAERS Safety Report 4757114-6 (Version None)
Quarter: 2005Q3

REPORT INFORMATION
  Report Type: 
  Country: None (occurrence: None)
  Receive Date: 20050829
  Receipt Date: 20050817
  Transmission Date: 20060218
  Serious: Yes (Other)
  Sender: FDA-Public Use
  Company Number: 2005117083

PATIENT
  Age: 62 Year
  Sex: Male

DRUGS (4)
  1. CABERGOLINE [Suspect]
     Indication: PARKINSON'S DISEASE
     Dosage: (3 MG), ORAL
     Route: 048
     Dates: start: 20030806, end: 20040702
  2. PERGOLIDE (PERGOLIDE) [Suspect]
     Indication: PARKINSON'S DISEASE
     Dosage: (3 MG), ORAL
     Route: 048
     Dates: start: 19960419, end: 20030122
  3. SINEMET [Concomitant]
  4. AMANTADINE HCL [Concomitant]

REACTIONS (2)
  - AORTIC VALVE STENOSIS [None]
  - DYSPNOEA [None]
